FAERS Safety Report 18338459 (Version 1)
Quarter: 2020Q3

REPORT INFORMATION
  Report Type: Spontaneous
  Country: US (occurrence: US)
  Receive Date: 20200930
  Receipt Date: 20200930
  Transmission Date: 20201103
  Serious: Yes (Hospitalization)
  Sender: FDA-Public Use
  Company Number: None

PATIENT
  Age: 58 Year
  Sex: Male
  Weight: 120 kg

DRUGS (2)
  1. ROSUVASTATIN (ROSUVASTATIN CA 40MG TAB) [Suspect]
     Active Substance: ROSUVASTATIN
     Indication: HYPERLIPIDAEMIA
     Route: 048
     Dates: start: 20140804, end: 20200802
  2. FENOFIBRATE (FENOFIBRATE 145MG TAB) [Suspect]
     Active Substance: FENOFIBRATE
     Indication: HYPERTRIGLYCERIDAEMIA
     Route: 048
     Dates: start: 20060224, end: 20200802

REACTIONS (6)
  - Rhabdomyolysis [None]
  - Hepatic enzyme increased [None]
  - Weight decreased [None]
  - Blood creatine phosphokinase increased [None]
  - Myalgia [None]
  - Myopathy [None]

NARRATIVE: CASE EVENT DATE: 20200730
